FAERS Safety Report 15004156 (Version 6)
Quarter: 2018Q3

REPORT INFORMATION
  Report Type: Report from Study
  Country: None (occurrence: TR)
  Receive Date: 20180613
  Receipt Date: 20180907
  Transmission Date: 20181010
  Serious: Yes (Hospitalization)
  Sender: FDA-Public Use
  Company Number: TR-ABBVIE-18K-161-2385734-00

PATIENT
  Age: 66 Year
  Sex: Female
  Weight: 76 kg

DRUGS (12)
  1. MOTILIUM [Concomitant]
     Active Substance: DOMPERIDONE
     Indication: PARKINSON^S DISEASE
     Route: 050
     Dates: start: 1988
  2. PARKYN [Concomitant]
     Indication: PARKINSON^S DISEASE
     Route: 048
  3. SEROQUEL [Concomitant]
     Active Substance: QUETIAPINE FUMARATE
     Indication: PARKINSON^S DISEASE
     Route: 048
     Dates: start: 20180709
  4. EQICEFT [Concomitant]
     Indication: PRODUCT USED FOR UNKNOWN INDICATION
     Route: 042
     Dates: start: 20180611
  5. DUODOPA [Suspect]
     Active Substance: CARBIDOPA\LEVODOPA
     Indication: PARKINSON^S DISEASE
     Dosage: MORNING DOSE: 4 ML?CONTINUING DOSE: 1.5 ML?EXTRA DOSE:0.5 ML
     Route: 050
     Dates: start: 20180525, end: 20180531
  6. DUODOPA [Suspect]
     Active Substance: CARBIDOPA\LEVODOPA
     Dosage: MORNING DOSE: 4 ML??CONTINUING DOSE: 1.80 ML??EXTRA DOSE: 0.5 ML
     Route: 050
     Dates: start: 20180607, end: 20180608
  7. DUODOPA [Suspect]
     Active Substance: CARBIDOPA\LEVODOPA
     Dosage: MORNING DOSE: 4.20 ML?CONTINUING DOSE: 2.0 ML?EXTRA DOSE:0.5 ML
     Route: 050
     Dates: start: 20180612, end: 20180709
  8. DUODOPA [Suspect]
     Active Substance: CARBIDOPA\LEVODOPA
     Dosage: CONTINUING DOSE: 2.10 ML
     Route: 050
     Dates: start: 20180709
  9. LANSOR [Concomitant]
     Active Substance: LANSOPRAZOLE
     Indication: PROPHYLAXIS
     Route: 048
     Dates: end: 20180625
  10. NEROX B [Concomitant]
     Indication: VITAMIN SUPPLEMENTATION
     Route: 048
  11. ESOMEPRAZOLE [Concomitant]
     Active Substance: ESOMEPRAZOLE
     Indication: PROPHYLAXIS
     Route: 048
     Dates: start: 20180625
  12. REQUIP [Concomitant]
     Active Substance: ROPINIROLE HYDROCHLORIDE
     Indication: PARKINSON^S DISEASE
     Route: 048

REACTIONS (6)
  - Haemoglobin increased [Not Recovered/Not Resolved]
  - Haematemesis [Recovered/Resolved]
  - Stoma site discharge [Recovered/Resolved]
  - Dyspepsia [Recovered/Resolved]
  - Device dislocation [Unknown]
  - C-reactive protein increased [Recovered/Resolved]

NARRATIVE: CASE EVENT DATE: 20180610
